FAERS Safety Report 9310725 (Version 1)
Quarter: 2013Q2

REPORT INFORMATION
  Report Type: Spontaneous
  Country: US (occurrence: US)
  Receive Date: 20130528
  Receipt Date: 20130528
  Transmission Date: 20140414
  Serious: No
  Sender: FDA-Public Use
  Company Number: US-009507513-1305USA011670

PATIENT
  Sex: 0

DRUGS (1)
  1. EMEND [Suspect]
     Route: 042

REACTIONS (3)
  - Inflammation [Recovered/Resolved]
  - Contusion [Recovered/Resolved]
  - Vein disorder [Recovered/Resolved]
